FAERS Safety Report 7729811-1 (Version None)
Quarter: 2011Q3

REPORT INFORMATION
  Report Type: 
  Country: None (occurrence: None)
  Receive Date: 20110901
  Receipt Date: 20110901
  Transmission Date: 20111222
  Serious: Yes (Other)
  Sender: FDA-Public Use
  Company Number: None

PATIENT
  Age: 73 Year
  Sex: Male
  Weight: 71.6683 kg

DRUGS (1)
  1. PRADAXA [Suspect]
     Indication: ATRIAL FIBRILLATION
     Dosage: 150 MG PER DAY ORAL
     Route: 048
     Dates: start: 20110401, end: 20110501

REACTIONS (4)
  - RASH [None]
  - BURNING SENSATION [None]
  - DYSPHAGIA [None]
  - OEDEMA PERIPHERAL [None]
